FAERS Safety Report 21879833 (Version 3)
Quarter: 2023Q1

REPORT INFORMATION
  Report Type: Spontaneous
  Country: US (occurrence: US)
  Receive Date: 20230118
  Receipt Date: 20230210
  Transmission Date: 20230418
  Serious: Yes (Hospitalization, Other)
  Sender: FDA-Public Use
  Company Number: US-PROGENICS PHARMACEUTICALS/LANTHEUS HOLDINGS-LMI-2022-01504

PATIENT
  Age: 73 Year
  Sex: Male

DRUGS (2)
  1. AZEDRA [Suspect]
     Active Substance: IOBENGUANE I-131
     Indication: Phaeochromocytoma
     Dosage: 500 MILLICURIE
     Route: 042
     Dates: start: 20220920, end: 20220920
  2. METOPROLOL [Concomitant]
     Active Substance: METOPROLOL
     Indication: Atrial fibrillation

REACTIONS (4)
  - Atrial fibrillation [Recovered/Resolved]
  - Hypotension [Recovered/Resolved]
  - Dizziness [Unknown]
  - Orthostatic hypotension [Not Recovered/Not Resolved]

NARRATIVE: CASE EVENT DATE: 20220920
